FAERS Safety Report 8533452-6 (Version None)
Quarter: 2012Q3

REPORT INFORMATION
  Report Type: 
  Country: None (occurrence: None)
  Receive Date: 20120724
  Receipt Date: 20120713
  Transmission Date: 20120928
  Serious: Yes (Hospitalization)
  Sender: FDA-Public Use
  Company Number: US-VERTEX PHARMACEUTICALS INC.-AE-2012-010630

PATIENT
  Sex: Female
  Weight: 115.2 kg

DRUGS (8)
  1. RIBASPHERE [Concomitant]
     Indication: HEPATITIS C
     Dates: start: 20120101
  2. EFFEXOR XR [Concomitant]
  3. PREMARIN [Concomitant]
  4. INCIVEK [Suspect]
     Indication: HEPATITIS C
     Route: 048
     Dates: start: 20120101
  5. PEGASYS [Concomitant]
     Indication: HEPATITIS C
     Route: 058
     Dates: start: 20120101
  6. DIAZEPAM [Concomitant]
  7. ZOLPIDEM TARTRATE [Concomitant]
  8. FENTANYL [Concomitant]

REACTIONS (4)
  - VOMITING [None]
  - STREPTOCOCCAL INFECTION [None]
  - FATIGUE [None]
  - NAUSEA [None]
